FAERS Safety Report 8210214-0 (Version None)
Quarter: 2012Q1

REPORT INFORMATION
  Report Type: 
  Country: None (occurrence: None)
  Receive Date: 20120314
  Receipt Date: 20110830
  Transmission Date: 20120608
  Serious: No
  Sender: FDA-Public Use
  Company Number: US-ASTRAZENECA-2011SE36521

PATIENT
  Age: 57 Year
  Sex: Female

DRUGS (8)
  1. XANAX [Concomitant]
  2. TOPROL-XL [Suspect]
     Indication: PALPITATIONS
     Route: 048
  3. CYMBALTA [Concomitant]
  4. LORTAB [Concomitant]
  5. TOPROL-XL [Suspect]
     Route: 048
  6. NARCO [Concomitant]
  7. SOMA [Concomitant]
  8. LODODENM [Concomitant]

REACTIONS (3)
  - FIBROMYALGIA [None]
  - SCIATICA [None]
  - FALL [None]
